FAERS Safety Report 10908114 (Version 1)
Quarter: 2015Q1

REPORT INFORMATION
  Report Type: Spontaneous
  Country: US (occurrence: US)
  Receive Date: 20150312
  Receipt Date: 20150312
  Transmission Date: 20150721
  Serious: No
  Sender: FDA-Public Use
  Company Number: US-INCYTE CORPORATION-2015IN000391

PATIENT
  Age: 72 Year
  Sex: Female
  Weight: 68.03 kg

DRUGS (12)
  1. PRAVASTATIN [Concomitant]
     Active Substance: PRAVASTATIN\PRAVASTATIN SODIUM
  2. CREON [Concomitant]
     Active Substance: PANCRELIPASE AMYLASE\PANCRELIPASE LIPASE\PANCRELIPASE PROTEASE
  3. HYDROCHLOROTHIAZIDE. [Concomitant]
     Active Substance: HYDROCHLOROTHIAZIDE
  4. LISINOPRIL. [Concomitant]
     Active Substance: LISINOPRIL
  5. ROPINIROLE. [Concomitant]
     Active Substance: ROPINIROLE
  6. AMLODIPINE [Concomitant]
     Active Substance: AMLODIPINE BESYLATE
  7. ASPIRIN. [Concomitant]
     Active Substance: ASPIRIN
  8. NOVOLOG [Concomitant]
     Active Substance: INSULIN ASPART
  9. OSCAL                              /07357001/ [Concomitant]
  10. JAKAFI [Suspect]
     Active Substance: RUXOLITINIB
     Dosage: 15 MG, BID
     Route: 048
     Dates: start: 201410
  11. METOPROLOL [Concomitant]
     Active Substance: METOPROLOL
  12. MULTIVITAMIN                       /00097801/ [Concomitant]
     Active Substance: VITAMINS

REACTIONS (2)
  - Drug dose omission [Unknown]
  - Weight increased [Unknown]

NARRATIVE: CASE EVENT DATE: 201410
